FAERS Safety Report 4350981-X (Version None)
Quarter: 2004Q2

REPORT INFORMATION
  Report Type: 
  Country: None (occurrence: None)
  Receive Date: 20040430
  Receipt Date: 20040421
  Transmission Date: 20050107
  Serious: Yes (Hospitalization)
  Sender: FDA-Public Use
  Company Number: US-ROCHE-365073

PATIENT
  Age: 68 Year
  Sex: Male
  Weight: 99.8 kg

DRUGS (2)
  1. PEG-INTERFERON ALFA 2A (RO 25-8310) [Suspect]
     Route: 058
  2. RIBAVIRIN [Suspect]
     Dosage: TAKEN DAILY
     Route: 048

REACTIONS (1)
  - HIP ARTHROPLASTY [None]
